FAERS Safety Report 24434355 (Version 2)
Quarter: 2024Q4

REPORT INFORMATION
  Report Type: Spontaneous
  Country: US (occurrence: US)
  Receive Date: 20241014
  Receipt Date: 20241209
  Transmission Date: 20250115
  Serious: Yes (Other)
  Sender: PFIZER
  Company Number: US-PFIZER INC-202400274991

PATIENT
  Age: 67 Year
  Sex: Female
  Weight: 63.492 kg

DRUGS (7)
  1. TUKYSA [Suspect]
     Active Substance: TUCATINIB
     Indication: Breast cancer metastatic
     Dosage: UNK UNK, CYCLIC
     Dates: start: 201501
  2. TUKYSA [Suspect]
     Active Substance: TUCATINIB
     Dosage: 200 MG, CYCLIC (TWICE A DAY,CYCLE 4)
     Dates: start: 20150608
  3. TUKYSA [Suspect]
     Active Substance: TUCATINIB
     Dosage: 150 MG, CYCLIC (TWICE A DAY, DURING CYCLE 7
     Route: 048
     Dates: start: 20150817
  4. CAPECITABINE [Suspect]
     Active Substance: CAPECITABINE
     Dosage: 500 MG, CYCLIC (1 PER DAY TWO WEEKS ON, ONE WEEK OFF)
     Dates: start: 201501
  5. CAPECITABINE [Suspect]
     Active Substance: CAPECITABINE
     Dosage: 1000 MG, CYCLIC (TWICE A DAY AT THE END OF CYCLE 2)
  6. CAPECITABINE [Suspect]
     Active Substance: CAPECITABINE
     Dosage: 500 MG, CYCLIC (TWICE A DAY AT CYCLE 4 )
  7. CAPECITABINE [Suspect]
     Active Substance: CAPECITABINE
     Dosage: 500 MG, CYCLIC (DAILY DURING CYCLE 10)
     Dates: start: 20151021

REACTIONS (8)
  - Fatigue [Not Recovered/Not Resolved]
  - Nausea [Recovered/Resolved]
  - Decreased appetite [Recovered/Resolved]
  - Alopecia [Unknown]
  - Cancer pain [Unknown]
  - Mucosal inflammation [Unknown]
  - Skin toxicity [Unknown]
  - Blister [Unknown]

NARRATIVE: CASE EVENT DATE: 20150608
